FAERS Safety Report 11935359 (Version 2)
Quarter: 2016Q2

REPORT INFORMATION
  Report Type: Spontaneous
  Country: US (occurrence: US)
  Receive Date: 20160121
  Receipt Date: 20160415
  Transmission Date: 20160815
  Serious: Yes (Hospitalization, Other)
  Sender: FDA-Public Use
  Company Number: US-PFIZER INC-2016030125

PATIENT
  Age: 63 Year
  Sex: Male

DRUGS (2)
  1. DEPO-TESTOSTERONE [Suspect]
     Active Substance: TESTOSTERONE CYPIONATE
     Indication: HORMONE REPLACEMENT THERAPY
     Dosage: UNK (ONE INJECTION FOR EVERY 2 WEEKS)
     Dates: start: 2005
  2. TESTOPEL [Suspect]
     Active Substance: TESTOSTERONE
     Indication: HORMONE REPLACEMENT THERAPY
     Dosage: UNK (PELLETS INSERTED)
     Dates: start: 2010

REACTIONS (7)
  - Cardiomyopathy [Unknown]
  - Deformity [Not Recovered/Not Resolved]
  - Varicose vein [Unknown]
  - Deep vein thrombosis [Unknown]
  - Anxiety [Unknown]
  - Pulmonary embolism [Unknown]
  - Vision blurred [Unknown]

NARRATIVE: CASE EVENT DATE: 201107
